FAERS Safety Report 8163970-4 (Version None)
Quarter: 2012Q1

REPORT INFORMATION
  Report Type: 
  Country: None (occurrence: None)
  Receive Date: 20120224
  Receipt Date: 20120215
  Transmission Date: 20120608
  Serious: Yes (Hospitalization)
  Sender: FDA-Public Use
  Company Number: US-ACTELION-A-NJ2011-55596

PATIENT

DRUGS (4)
  1. TRACLEER [Suspect]
     Indication: PULMONARY ARTERIAL HYPERTENSION
     Dosage: UNK
     Route: 048
     Dates: start: 20110816, end: 20110101
  2. TRACLEER [Suspect]
     Dosage: UNK
     Route: 048
     Dates: start: 20111101
  3. TRACLEER [Suspect]
     Dosage: 62.5 MG, BID
     Route: 048
     Dates: end: 20120106
  4. REVATIO [Concomitant]

REACTIONS (4)
  - LIVER FUNCTION TEST ABNORMAL [None]
  - ALANINE AMINOTRANSFERASE INCREASED [None]
  - ASPARTATE AMINOTRANSFERASE INCREASED [None]
  - PNEUMONIA [None]
